FAERS Safety Report 15457400 (Version 1)
Quarter: 2018Q4

REPORT INFORMATION
  Report Type: Spontaneous
  Country: BR (occurrence: BR)
  Receive Date: 20181002
  Receipt Date: 20181002
  Transmission Date: 20190204
  Serious: Yes (Other)
  Sender: FDA-Public Use
  Company Number: US-ASTRAZENECA-2018SF27933

PATIENT
  Age: 2 Year
  Sex: Male

DRUGS (1)
  1. PALIVIZUMAB [Suspect]
     Active Substance: PALIVIZUMAB
     Indication: PRODUCT USED FOR UNKNOWN INDICATION
     Dosage: DOSE UNKNOWN
     Route: 030

REACTIONS (3)
  - Hyperhidrosis [Unknown]
  - Pallor [Unknown]
  - Laryngospasm [Unknown]

NARRATIVE: CASE EVENT DATE: 201807
